FAERS Safety Report 24845716 (Version 2)
Quarter: 2025Q1

REPORT INFORMATION
  Report Type: Report from Study
  Country: ES (occurrence: ES)
  Receive Date: 20250115
  Receipt Date: 20250220
  Transmission Date: 20250408
  Serious: Yes (Other)
  Sender: TAKEDA
  Company Number: ES-TAKEDA-2025TUS003861

PATIENT

DRUGS (1)
  1. IXAZOMIB [Suspect]
     Active Substance: IXAZOMIB
     Indication: Product used for unknown indication

REACTIONS (3)
  - Renal failure [Recovering/Resolving]
  - Primary amyloidosis [Recovering/Resolving]
  - Diarrhoea [Recovering/Resolving]
